FAERS Safety Report 5919776-7 (Version None)
Quarter: 2008Q4

REPORT INFORMATION
  Report Type: 
  Country: None (occurrence: None)
  Receive Date: 20081010
  Receipt Date: 20080920
  Transmission Date: 20090506
  Serious: Yes (Congenital Anomaly)
  Sender: FDA-Public Use
  Company Number: TUK2008A00122

PATIENT
  Sex: 0

DRUGS (6)
  1. ACTOS [Suspect]
     Dosage: DAYS
  2. METFORMIN HCL [Suspect]
     Dosage: DAYS
  3. SIMVASTATIN [Suspect]
     Dosage: DAYS
  4. ASPIRIN [Suspect]
     Dosage: DAYS
  5. RAMIPRIL [Suspect]
     Dosage: DAYS
  6. INSULIN (INSULIN) [Concomitant]

REACTIONS (6)
  - CAESAREAN SECTION [None]
  - CONGENITAL ANOMALY [None]
  - CYTOGENETIC ABNORMALITY [None]
  - DYSPHAGIA [None]
  - GROWTH RETARDATION [None]
  - MATERNAL DRUGS AFFECTING FOETUS [None]
